FAERS Safety Report 8453553-0 (Version None)
Quarter: 2012Q2

REPORT INFORMATION
  Report Type: 
  Country: None (occurrence: None)
  Receive Date: 20120620
  Receipt Date: 20120608
  Transmission Date: 20120825
  Serious: Yes (Hospitalization)
  Sender: FDA-Public Use
  Company Number: FR-PFIZER INC-2012100712

PATIENT
  Age: 15 Year
  Sex: Female

DRUGS (7)
  1. TAXOTERE [Suspect]
     Indication: BRAIN NEOPLASM
     Dosage: 150 MG IN 1 HOUR IN SLOW INTRAVENOUS
     Route: 042
     Dates: start: 20120110, end: 20120110
  2. GEMZAR [Suspect]
     Dosage: 1100 MG IN 90 MINUTES IN SLOW INTRAVENOUS
     Route: 042
     Dates: start: 20120110, end: 20120110
  3. ATARAX [Suspect]
     Indication: PREMEDICATION
     Dosage: 50 MG/DAY
     Route: 048
     Dates: start: 20120110, end: 20120110
  4. ZOFRAN [Suspect]
     Indication: PROPHYLAXIS OF NAUSEA AND VOMITING
     Dosage: UNK
     Route: 048
     Dates: start: 20120110, end: 20120110
  5. PLITICAN [Suspect]
     Indication: PROPHYLAXIS OF NAUSEA AND VOMITING
     Dosage: UNK
     Route: 042
     Dates: start: 20120110, end: 20120110
  6. GEMZAR [Suspect]
     Indication: BRAIN NEOPLASM
     Dosage: 1100 MG IN 90 MINUTES IN SLOW INTRAVENOUS
     Route: 042
     Dates: start: 20120103, end: 20120103
  7. SOLU-MEDROL [Suspect]
     Indication: PREMEDICATION
     Dosage: 60 MG/DAY
     Route: 042
     Dates: start: 20120110, end: 20120110

REACTIONS (2)
  - ERYTHEMA [None]
  - ARTHRALGIA [None]
